FAERS Safety Report 10177496 (Version 2)
Quarter: 2014Q2

REPORT INFORMATION
  Report Type: Spontaneous
  Country: PT (occurrence: PT)
  Receive Date: 20140516
  Receipt Date: 20140516
  Transmission Date: 20141212
  Serious: Yes (Hospitalization, Other)
  Sender: FDA-Public Use
  Company Number: PT-ABBVIE-11P-130-0844252-00

PATIENT
  Age: 46 Year
  Sex: Male

DRUGS (15)
  1. HUMIRA 40 MG/ 0.8 ML PRE-FILLED SYRINGE [Suspect]
     Indication: SERONEGATIVE ARTHRITIS
     Dates: start: 201012, end: 201103
  2. HUMIRA 40 MG/ 0.8 ML PRE-FILLED SYRINGE [Suspect]
     Indication: SERONEGATIVE ARTHRITIS
  3. HUMIRA 40 MG/ 0.8 ML PRE-FILLED SYRINGE [Suspect]
     Indication: SPONDYLOARTHROPATHY
  4. ENBREL [Suspect]
     Indication: SERONEGATIVE ARTHRITIS
     Dates: start: 200601
  5. ENBREL [Suspect]
     Indication: LEUKOCYTE ANTIGEN B-27 POSITIVE
  6. ENBREL [Suspect]
     Indication: PSORIASIS
  7. ENBREL [Suspect]
     Indication: SERONEGATIVE ARTHRITIS
  8. GOLIMUMAB [Suspect]
     Indication: SERONEGATIVE ARTHRITIS
     Dosage: RECEIVED ONLY TWO DOSES-50MG MONTHLY
     Route: 065
     Dates: start: 201105, end: 20110713
  9. GOLIMUMAB [Suspect]
     Indication: LEUKOCYTE ANTIGEN B-27 POSITIVE
  10. GOLIMUMAB [Suspect]
     Indication: SERONEGATIVE ARTHRITIS
  11. GOLIMUMAB [Suspect]
     Indication: SPONDYLOARTHROPATHY
  12. UNSPECIFIED ANTI-INFLAMMATORY DRUG [Concomitant]
     Indication: PRODUCT USED FOR UNKNOWN INDICATION
  13. CYCLOSPORINE [Concomitant]
     Indication: PRODUCT USED FOR UNKNOWN INDICATION
     Dosage: FOR THREE YEARS
  14. ZYLORIC [Concomitant]
     Indication: PRODUCT USED FOR UNKNOWN INDICATION
  15. VOLTAREN [Concomitant]
     Indication: PRODUCT USED FOR UNKNOWN INDICATION

REACTIONS (5)
  - Monoparesis [Unknown]
  - Demyelination [Unknown]
  - Asthenia [Unknown]
  - Spondyloarthropathy [Unknown]
  - Drug ineffective [Unknown]
